FAERS Safety Report 15806709 (Version 1)
Quarter: 2019Q1

REPORT INFORMATION
  Report Type: Report from Study
  Country: US (occurrence: US)
  Receive Date: 20190110
  Receipt Date: 20190110
  Transmission Date: 20190417
  Serious: Yes (Hospitalization, Other)
  Sender: FDA-Public Use
  Company Number: US-BAYER-2019-004312

PATIENT
  Age: 69 Year
  Sex: Male

DRUGS (1)
  1. STIVARGA [Suspect]
     Active Substance: REGORAFENIB
     Indication: HEPATOCELLULAR CARCINOMA
     Dosage: 80MG DAILY FOR 21 DAYS ON 7 OFF
     Dates: start: 20180920

REACTIONS (6)
  - Off label use [None]
  - Influenza [Unknown]
  - Aspiration [Unknown]
  - Pharyngeal inflammation [Unknown]
  - Pneumonia [Unknown]
  - Hospitalisation [Not Recovered/Not Resolved]

NARRATIVE: CASE EVENT DATE: 20181226
